FAERS Safety Report 7690983-9 (Version None)
Quarter: 2011Q3

REPORT INFORMATION
  Report Type: 
  Country: None (occurrence: None)
  Receive Date: 20110812
  Receipt Date: 20110728
  Transmission Date: 20111222
  Serious: Yes (Hospitalization)
  Sender: FDA-Public Use
  Company Number: 2011MA008989

PATIENT
  Age: 27 Year
  Sex: Female

DRUGS (1)
  1. RIFAMPIN [Suspect]
     Indication: ANTIBIOTIC PROPHYLAXIS
     Dosage: 600 MG; QD;

REACTIONS (6)
  - HEPATITIS [None]
  - THROMBOCYTOPENIA [None]
  - TOXICITY TO VARIOUS AGENTS [None]
  - MONONUCLEOSIS SYNDROME [None]
  - NEUTROPENIA [None]
  - APOPTOSIS [None]
